FAERS Safety Report 23682874 (Version 1)
Quarter: 2024Q1

REPORT INFORMATION
  Report Type: Spontaneous
  Country: US (occurrence: US)
  Receive Date: 20240328
  Receipt Date: 20240328
  Transmission Date: 20240410
  Serious: No
  Sender: FDA-Public Use
  Company Number: US-PFIZER INC-202400072933

PATIENT
  Age: 36 Year
  Sex: Female

DRUGS (2)
  1. VELSIPITY [Interacting]
     Active Substance: ETRASIMOD ARGININE
     Dosage: 2 MG
  2. PROPRANOLOL [Interacting]
     Active Substance: PROPRANOLOL HYDROCHLORIDE
     Dosage: UNK

REACTIONS (1)
  - Drug interaction [Unknown]
